FAERS Safety Report 14988145 (Version 2)
Quarter: 2018Q2

REPORT INFORMATION
  Report Type: Spontaneous
  Country: US (occurrence: US)
  Receive Date: 20180608
  Receipt Date: 20180625
  Transmission Date: 20180711
  Serious: No
  Sender: FDA-Public Use
  Company Number: US-PFIZER INC-2018230634

PATIENT

DRUGS (1)
  1. ADVIL PM [Suspect]
     Active Substance: DIPHENHYDRAMINE CITRATE\IBUPROFEN
     Dosage: UNK

REACTIONS (6)
  - Eye pain [Recovered/Resolved]
  - Eye disorder [Recovered/Resolved]
  - Lacrimation increased [Recovered/Resolved]
  - Incorrect dose administered [Recovered/Resolved]
  - Eye pruritus [Recovered/Resolved]
  - Hordeolum [Recovered/Resolved]
